FAERS Safety Report 11031676 (Version 1)
Quarter: 2015Q2

REPORT INFORMATION
  Report Type: Spontaneous
  Country: US (occurrence: US)
  Receive Date: 20150415
  Receipt Date: 20150415
  Transmission Date: 20150821
  Serious: No
  Sender: FDA-Public Use
  Company Number: US-HORIZON-PEN-0004-2015

PATIENT
  Sex: Female

DRUGS (1)
  1. PENNSAID [Suspect]
     Active Substance: DICLOFENAC SODIUM
     Indication: ARTHRALGIA
     Dosage: 2 APPLICATIONS
     Route: 061
     Dates: start: 20150117, end: 20150118

REACTIONS (3)
  - Joint swelling [Recovered/Resolved]
  - Arthralgia [Recovering/Resolving]
  - Chondrocalcinosis pyrophosphate [Unknown]

NARRATIVE: CASE EVENT DATE: 20150118
